FAERS Safety Report 4296868-2 (Version None)
Quarter: 2004Q1

REPORT INFORMATION
  Report Type: 
  Country: None (occurrence: None)
  Receive Date: 20040126
  Receipt Date: 20030903
  Transmission Date: 20041129
  Serious: No
  Sender: FDA-Public Use
  Company Number: USA030432926

PATIENT
  Age: 14 Year
  Sex: Male
  Weight: 89 kg

DRUGS (3)
  1. STRATTERA [Suspect]
     Indication: ATTENTION DEFICIT/HYPERACTIVITY DISORDER
     Dosage: 60 MG/IN THE MORNING
     Dates: start: 20030325
  2. SYNTHROID [Concomitant]
  3. ADVIL [Concomitant]

REACTIONS (4)
  - DYSPEPSIA [None]
  - HYPOTHYROIDISM [None]
  - IRRITABILITY [None]
  - RASH [None]
